FAERS Safety Report 9500612 (Version 1)
Quarter: 2013Q3

REPORT INFORMATION
  Report Type: Spontaneous
  Country: US (occurrence: None)
  Receive Date: 20130903
  Receipt Date: 20130903
  Transmission Date: 20140515
  Serious: Yes (Death, Hospitalization)
  Sender: FDA-Public Use
  Company Number: 139684

PATIENT
  Sex: Male
  Weight: 133 kg

DRUGS (2)
  1. CYTARABINE [Suspect]
     Indication: ACUTE MYELOID LEUKAEMIA
     Dosage: DAYS 1-7 X 1-2 CYCLES; TOTAL 1743MG
     Route: 042
     Dates: start: 20120705, end: 20120711
  2. DAUNORUBICIN HCL [Suspect]

REACTIONS (8)
  - Respiratory failure [None]
  - Pulmonary alveolar haemorrhage [None]
  - Atelectasis [None]
  - Neutropenia [None]
  - Thrombocytopenia [None]
  - Hypoxia [None]
  - Bronchial secretion retention [None]
  - PCO2 increased [None]
